FAERS Safety Report 16238364 (Version 12)
Quarter: 2020Q4

REPORT INFORMATION
  Report Type: Spontaneous
  Country: US (occurrence: US)
  Receive Date: 20190425
  Receipt Date: 20201123
  Transmission Date: 20210113
  Serious: No
  Sender: FDA-Public Use
  Company Number: US-PFIZER INC-2019173429

PATIENT
  Age: 75 Year
  Sex: Male

DRUGS (4)
  1. LYRICA [Suspect]
     Active Substance: PREGABALIN
     Indication: TESTICULAR PAIN
     Dosage: 200 MG, TWICE A DAY (EVERY 12 HOURS)
     Route: 048
     Dates: start: 20190520
  2. LYRICA [Suspect]
     Active Substance: PREGABALIN
     Dosage: 200 MG, 2X/DAY[TAKE 1 CAPSULE (200 MG TOTAL) BY MOUTH EVERY 12 HOURS]
     Route: 048
     Dates: start: 20200605
  3. LYRICA [Suspect]
     Active Substance: PREGABALIN
     Indication: NEURALGIA
     Dosage: 200 MG, ONCE DAILY
     Route: 048
  4. LYRICA [Suspect]
     Active Substance: PREGABALIN
     Indication: DIABETIC NEUROPATHY
     Dosage: 200 MG, TWICE A DAY (EVERY 12 HOURS)
     Route: 048
     Dates: start: 20191217

REACTIONS (2)
  - Drug hypersensitivity [Unknown]
  - Contraindicated product prescribed [Unknown]

NARRATIVE: CASE EVENT DATE: 20190409
